FAERS Safety Report 6671826-9 (Version None)
Quarter: 2010Q2

REPORT INFORMATION
  Report Type: 
  Country: None (occurrence: None)
  Receive Date: 20100407
  Receipt Date: 20100329
  Transmission Date: 20101027
  Serious: Yes (Other)
  Sender: FDA-Public Use
  Company Number: US-PFIZER INC-2009151661

PATIENT
  Sex: Male
  Weight: 78 kg

DRUGS (2)
  1. CHANTIX [Suspect]
     Indication: SMOKING CESSATION THERAPY
     Dosage: UNK
     Route: 048
     Dates: start: 20080501, end: 20090105
  2. PROZAC [Concomitant]
     Indication: DEPRESSION
     Dosage: 20 MG, 1X/DAY
     Route: 048

REACTIONS (17)
  - ABNORMAL DREAMS [None]
  - AGITATION [None]
  - ANGER [None]
  - CONDITION AGGRAVATED [None]
  - CONFUSIONAL STATE [None]
  - DEPRESSION [None]
  - DRUG INEFFECTIVE [None]
  - IMPAIRED WORK ABILITY [None]
  - INSOMNIA [None]
  - MENTAL DISORDER [None]
  - NERVOUS SYSTEM DISORDER [None]
  - NICOTINE DEPENDENCE [None]
  - PANIC ATTACK [None]
  - PARTNER STRESS [None]
  - SUICIDAL IDEATION [None]
  - VIOLENCE-RELATED SYMPTOM [None]
  - WEIGHT DECREASED [None]
